FAERS Safety Report 8136422-5 (Version None)
Quarter: 2012Q1

REPORT INFORMATION
  Report Type: 
  Country: None (occurrence: None)
  Receive Date: 20120103
  Receipt Date: 20110824
  Transmission Date: 20120608
  Serious: No
  Sender: FDA-Public Use
  Company Number: AE-2011-001111

PATIENT
  Age: 52 Year
  Sex: Female
  Weight: 110.6777 kg

DRUGS (4)
  1. INCIVEK [Suspect]
     Dosage: 2250 MG (750 MG, 1 IN 8 HR), ORAL
     Route: 048
     Dates: start: 20110728
  2. RIBASPHERE [Concomitant]
  3. PEGASYS [Concomitant]
  4. FEXOFENADINE HCL [Concomitant]

REACTIONS (7)
  - INFLUENZA LIKE ILLNESS [None]
  - PAIN [None]
  - DYSSTASIA [None]
  - MYALGIA [None]
  - INSOMNIA [None]
  - MUSCLE SPASMS [None]
  - GAIT DISTURBANCE [None]
